FAERS Safety Report 12463894 (Version 2)
Quarter: 2016Q2

REPORT INFORMATION
  Report Type: Spontaneous
  Country: BR (occurrence: BR)
  Receive Date: 20160614
  Receipt Date: 20160616
  Transmission Date: 20160815
  Serious: Yes (Hospitalization, Disabling)
  Sender: FDA-Public Use
  Company Number: BR-GE HEALTHCARE MEDICAL DIAGNOSTICS-VISP-PR-1606S-0341

PATIENT
  Sex: Male

DRUGS (13)
  1. PLAVIX [Concomitant]
     Active Substance: CLOPIDOGREL BISULFATE
  2. AAS [Concomitant]
     Active Substance: ASPIRIN
  3. EZETROL [Concomitant]
     Active Substance: EZETIMIBE
  4. ENALAPRIL MALEATE. [Concomitant]
     Active Substance: ENALAPRIL MALEATE
  5. DIPIRONA [Concomitant]
     Active Substance: METAMIZOLE
  6. VISIPAQUE [Suspect]
     Active Substance: IODIXANOL
     Indication: CARDIOVASCULAR DISORDER
     Route: 065
     Dates: start: 20160509, end: 20160509
  7. ENDOFILIM [Concomitant]
  8. TEGRETOL [Concomitant]
     Active Substance: CARBAMAZEPINE
  9. VISIPAQUE [Suspect]
     Active Substance: IODIXANOL
     Indication: DIAGNOSTIC PROCEDURE
  10. ONDANSETRON [Concomitant]
     Active Substance: ONDANSETRON
  11. PURAN [Concomitant]
     Active Substance: LEVOTHYROXINE SODIUM
  12. LAMICTAL [Concomitant]
     Active Substance: LAMOTRIGINE
  13. CRESTOR [Concomitant]
     Active Substance: ROSUVASTATIN CALCIUM

REACTIONS (6)
  - Rash maculo-papular [Unknown]
  - Chest pain [Unknown]
  - Blood pressure increased [Unknown]
  - Rash erythematous [Unknown]
  - Blood pressure decreased [Unknown]
  - Hyperaemia [Unknown]

NARRATIVE: CASE EVENT DATE: 20160509
